FAERS Safety Report 7338908-X (Version None)
Quarter: 2011Q1

REPORT INFORMATION
  Report Type: 
  Country: None (occurrence: None)
  Receive Date: 20110304
  Receipt Date: 20110304
  Transmission Date: 20110831
  Serious: No
  Sender: FDA-Public Use
  Company Number: None

PATIENT
  Sex: Female
  Weight: 67.9 kg

DRUGS (2)
  1. TAXOL [Suspect]
     Dosage: 420 MG
     Dates: end: 20110121
  2. CARBOPLATIN [Suspect]
     Dosage: 860 MG
     Dates: end: 20110107

REACTIONS (4)
  - TREMOR [None]
  - BLOOD MAGNESIUM DECREASED [None]
  - FATIGUE [None]
  - ASTHENIA [None]
